FAERS Safety Report 6061677-0 (Version None)
Quarter: 2009Q1

REPORT INFORMATION
  Report Type: 
  Country: None (occurrence: None)
  Receive Date: 20090202
  Receipt Date: 20090123
  Transmission Date: 20090719
  Serious: Yes (Hospitalization)
  Sender: FDA-Public Use
  Company Number: FR-WYE-H07959809

PATIENT
  Sex: Male

DRUGS (12)
  1. CORDARONE [Interacting]
     Indication: ARRHYTHMIA
     Route: 048
     Dates: end: 20080519
  2. RILMENIDINE [Suspect]
     Indication: HYPERTENSION
     Route: 048
     Dates: end: 20080521
  3. NICERGOLINE [Suspect]
     Indication: MENTAL IMPAIRMENT
     Route: 048
     Dates: end: 20080519
  4. DOXAZOSIN MESYLATE [Suspect]
     Indication: PROSTATIC ADENOMA
     Route: 048
     Dates: end: 20080519
  5. TAHOR [Concomitant]
     Dosage: UNKNOWN
     Route: 048
  6. MONICOR L.P. [Concomitant]
     Indication: PROPHYLAXIS
     Route: 048
  7. BROMAZEPAM [Concomitant]
     Indication: ANXIETY
     Dosage: UNKNOWN
     Route: 048
  8. KARDEGIC [Concomitant]
     Dosage: UNKNOWN
  9. PHENOBARBITAL TAB [Concomitant]
     Dosage: UNKNOWN
  10. ALLOPURINOL [Concomitant]
     Dosage: UNKNOWN
     Route: 048
  11. DILTIAZEM HCL [Interacting]
     Indication: HYPERTENSION
     Route: 048
     Dates: end: 20080520
  12. LOSARTAN POTASSIUM AND HYDROCHLOROTHIAZIDE [Suspect]
     Indication: HYPERTENSION
     Route: 048
     Dates: end: 20080519

REACTIONS (4)
  - BALANCE DISORDER [None]
  - BRADYCARDIA [None]
  - CONFUSIONAL STATE [None]
  - DRUG INTERACTION [None]
